FAERS Safety Report 5327778-7 (Version None)
Quarter: 2007Q2

REPORT INFORMATION
  Report Type: 
  Country: None (occurrence: None)
  Receive Date: 20070517
  Receipt Date: 20070515
  Transmission Date: 20071010
  Serious: Yes (Hospitalization)
  Sender: FDA-Public Use
  Company Number: US-BRISTOL-MYERS SQUIBB COMPANY-13766753

PATIENT
  Age: 74 Year
  Sex: Female

DRUGS (5)
  1. ABATACEPT [Suspect]
     Indication: RHEUMATOID ARTHRITIS
     Route: 058
     Dates: start: 20070228
  2. DARVOCET [Concomitant]
  3. PREDNISONE TAB [Concomitant]
     Route: 048
     Dates: start: 20040101
  4. METHOTREXATE [Concomitant]
     Dates: start: 20050601
  5. FIORICET [Concomitant]
     Dates: start: 20040101

REACTIONS (2)
  - GASTROENTERITIS [None]
  - URINARY TRACT INFECTION [None]
